FAERS Safety Report 6845111-6 (Version None)
Quarter: 2010Q3

REPORT INFORMATION
  Report Type: 
  Country: None (occurrence: None)
  Receive Date: 20100715
  Receipt Date: 20071023
  Transmission Date: 20110219
  Serious: No
  Sender: FDA-Public Use
  Company Number: US-PFIZER INC-2007067705

PATIENT
  Sex: Female
  Weight: 92.5 kg

DRUGS (2)
  1. CHANTIX [Suspect]
     Indication: SMOKING CESSATION THERAPY
     Route: 048
     Dates: start: 20070802
  2. PRILOSEC [Concomitant]
     Indication: GASTROOESOPHAGEAL REFLUX DISEASE
     Dates: start: 20070802

REACTIONS (5)
  - ABDOMINAL PAIN [None]
  - FATIGUE [None]
  - INSOMNIA [None]
  - MYALGIA [None]
  - NAUSEA [None]
